FAERS Safety Report 8586767-X (Version None)
Quarter: 2012Q3

REPORT INFORMATION
  Report Type: 
  Country: None (occurrence: None)
  Receive Date: 20120810
  Receipt Date: 20120805
  Transmission Date: 20120928
  Serious: Yes (Hospitalization)
  Sender: FDA-Public Use
  Company Number: CA-ELI_LILLY_AND_COMPANY-CA201208002368

PATIENT
  Age: 76 Year
  Sex: Female

DRUGS (8)
  1. SYNTHROID [Concomitant]
  2. BISOPROLOL FUMARATE [Concomitant]
  3. ASPIRIN [Concomitant]
     Dosage: 81 MG, UNK
  4. TYLENOL ARTHRITIS [Concomitant]
  5. AMLODIPINE [Concomitant]
  6. IRBESARTAN [Concomitant]
  7. FORTEO [Suspect]
     Indication: OSTEOPOROSIS
     Dosage: 20 UG, QD
     Route: 058
     Dates: start: 20110502
  8. WARFARIN SODIUM [Concomitant]

REACTIONS (1)
  - ATRIAL FIBRILLATION [None]
